FAERS Safety Report 5775460-4 (Version None)
Quarter: 2008Q2

REPORT INFORMATION
  Report Type: 
  Country: None (occurrence: None)
  Receive Date: 20080612
  Receipt Date: 20080527
  Transmission Date: 20081010
  Serious: Yes (Hospitalization)
  Sender: FDA-Public Use
  Company Number: 2008BI001550

PATIENT
  Age: 39 Year
  Sex: Male

DRUGS (4)
  1. AVONEX [Suspect]
     Indication: MULTIPLE SCLEROSIS
     Dosage: 30 UG; QW; IM
     Route: 030
     Dates: start: 20020101
  2. INSULIN [Concomitant]
  3. TRITTICO [Concomitant]
  4. REBIF [Concomitant]

REACTIONS (8)
  - DISEASE PROGRESSION [None]
  - DISEASE RECURRENCE [None]
  - FACE OEDEMA [None]
  - INFLUENZA [None]
  - LIP SWELLING [None]
  - MULTIPLE SCLEROSIS [None]
  - RASH PRURITIC [None]
  - URTICARIA [None]
